FAERS Safety Report 14975039 (Version 2)
Quarter: 2019Q1

REPORT INFORMATION
  Report Type: Report from Study
  Country: FR (occurrence: FR)
  Receive Date: 20180605
  Receipt Date: 20190313
  Transmission Date: 20190417
  Serious: Yes (Death)
  Sender: FDA-Public Use
  Company Number: FR-BAYER-2018-104507

PATIENT

DRUGS (1)
  1. ADEMPAS [Suspect]
     Active Substance: RIOCIGUAT

REACTIONS (1)
  - Death [Fatal]
